FAERS Safety Report 8935611 (Version 3)
Quarter: 2013Q1

REPORT INFORMATION
  Report Type: Spontaneous
  Country: US (occurrence: US)
  Receive Date: 20121130
  Receipt Date: 20130201
  Transmission Date: 20140127
  Serious: Yes (Other)
  Sender: FDA-Public Use
  Company Number: US-PFIZER INC-2012300233

PATIENT
  Sex: 0

DRUGS (3)
  1. LIPITOR [Suspect]
     Dosage: UNK, ONCE DAILY
  2. CELEBREX [Suspect]
     Dosage: UNK
  3. GLUCOTROL XL [Suspect]
     Dosage: UNK

REACTIONS (3)
  - Arthropathy [Unknown]
  - Diabetes mellitus [Unknown]
  - Anaemia [Unknown]
